FAERS Safety Report 18104973 (Version 8)
Quarter: 2024Q2

REPORT INFORMATION
  Report Type: Spontaneous
  Country: US (occurrence: US)
  Receive Date: 20200803
  Receipt Date: 20240409
  Transmission Date: 20240715
  Serious: No
  Sender: FDA-Public Use
  Company Number: US-BIOGEN-2019BI00754390

PATIENT
  Sex: Female

DRUGS (1)
  1. TECFIDERA [Suspect]
     Active Substance: DIMETHYL FUMARATE
     Indication: Multiple sclerosis
     Route: 050
     Dates: start: 20130426

REACTIONS (18)
  - Product dose omission issue [Unknown]
  - Product dose omission in error [Unknown]
  - Irritable bowel syndrome [Not Recovered/Not Resolved]
  - Multiple sclerosis [Unknown]
  - Cognitive disorder [Unknown]
  - Poor quality sleep [Unknown]
  - Hiatus hernia [Unknown]
  - Multiple sclerosis relapse [Unknown]
  - Headache [Unknown]
  - Gastrointestinal disorder [Recovered/Resolved]
  - Anxiety [Recovered/Resolved]
  - Nausea [Not Recovered/Not Resolved]
  - Abdominal pain [Unknown]
  - Hot flush [Unknown]
  - Rash [Unknown]
  - Abdominal pain upper [Recovered/Resolved]
  - Diarrhoea [Recovered/Resolved]
  - Flushing [Recovered/Resolved]
